FAERS Safety Report 7590283-1 (Version None)
Quarter: 2011Q3

REPORT INFORMATION
  Report Type: 
  Country: None (occurrence: None)
  Receive Date: 20110705
  Receipt Date: 20110617
  Transmission Date: 20111222
  Serious: Yes (Hospitalization, Other)
  Sender: FDA-Public Use
  Company Number: KR-BAYER-2011-049361

PATIENT
  Age: 71 Year
  Sex: Male

DRUGS (2)
  1. NEXAVAR [Suspect]
     Indication: HEPATIC NEOPLASM MALIGNANT
     Dosage: 1 DF, BID
     Route: 048
     Dates: start: 20110607, end: 20110608
  2. ZEFFIX [Concomitant]

REACTIONS (3)
  - HAEMATEMESIS [None]
  - ASCITES [None]
  - NAUSEA [None]
